FAERS Safety Report 17200998 (Version 1)
Quarter: 2019Q4

REPORT INFORMATION
  Report Type: Spontaneous
  Country: FR (occurrence: FR)
  Receive Date: 20191226
  Receipt Date: 20191226
  Transmission Date: 20200122
  Serious: Yes (Hospitalization)
  Sender: FDA-Public Use
  Company Number: FR-TEVA-2019-FR-1157025

PATIENT
  Age: 72 Year
  Sex: Male
  Weight: 68 kg

DRUGS (3)
  1. NIVOLUMAB [Suspect]
     Active Substance: NIVOLUMAB
     Indication: ANAL CANCER
     Dosage: 3 CURES
     Route: 041
     Dates: start: 20190701, end: 20190823
  2. PACLITAXEL TEVA [Suspect]
     Active Substance: PACLITAXEL
     Indication: ANAL CANCER
     Dosage: 150MG J1, J8, J15
     Route: 041
     Dates: start: 20190919, end: 20191003
  3. CARBOPLATINE ACCORD [Suspect]
     Active Substance: CARBOPLATIN
     Indication: ANAL CANCER
     Dosage: 340 MG
     Route: 041
     Dates: start: 20190919, end: 20190919

REACTIONS (2)
  - Colitis [Recovered/Resolved with Sequelae]
  - Diarrhoea [Recovered/Resolved with Sequelae]

NARRATIVE: CASE EVENT DATE: 201910
